FAERS Safety Report 12404815 (Version 1)
Quarter: 2016Q2

REPORT INFORMATION
  Report Type: Spontaneous
  Country: US (occurrence: US)
  Receive Date: 20160525
  Receipt Date: 20160525
  Transmission Date: 20160815
  Serious: Yes (Hospitalization)
  Sender: FDA-Public Use
  Company Number: US-JNJFOC-20160518005

PATIENT
  Age: 73 Year
  Sex: Female

DRUGS (3)
  1. LEVAQUIN [Suspect]
     Active Substance: LEVOFLOXACIN
     Indication: CYSTITIS
     Route: 065
  2. XELJANZ [Concomitant]
     Active Substance: TOFACITINIB CITRATE
     Indication: RHEUMATOID ARTHRITIS
     Route: 048
     Dates: start: 20150317
  3. LEVAQUIN [Suspect]
     Active Substance: LEVOFLOXACIN
     Indication: HERPES ZOSTER
     Route: 065

REACTIONS (5)
  - Facial paralysis [Unknown]
  - Fall [Unknown]
  - Head injury [Unknown]
  - Drug hypersensitivity [Unknown]
  - Dehydration [Unknown]

NARRATIVE: CASE EVENT DATE: 20160407
